FAERS Safety Report 8115750-3 (Version None)
Quarter: 2012Q1

REPORT INFORMATION
  Report Type: 
  Country: None (occurrence: None)
  Receive Date: 20120206
  Receipt Date: 20120123
  Transmission Date: 20120608
  Serious: Yes (Other)
  Sender: FDA-Public Use
  Company Number: KR-ROCHE-1037027

PATIENT
  Age: 80 Year
  Sex: Male

DRUGS (2)
  1. WARFARIN SODIUM [Interacting]
     Indication: ATRIAL FIBRILLATION
  2. TAMIFLU [Suspect]
     Indication: INFLUENZA
     Dosage: 5 DAYS

REACTIONS (2)
  - DRUG INTERACTION [None]
  - INTERNATIONAL NORMALISED RATIO INCREASED [None]
